FAERS Safety Report 20793455 (Version 1)
Quarter: 2022Q2

REPORT INFORMATION
  Report Type: Spontaneous
  Country: US (occurrence: US)
  Receive Date: 20220506
  Receipt Date: 20220506
  Transmission Date: 20220721
  Serious: No
  Sender: FDA-Public Use
  Company Number: US-GRANULES-US-2022GRASPO00103

PATIENT
  Sex: Male

DRUGS (2)
  1. GUAIFENESIN [Suspect]
     Active Substance: GUAIFENESIN
     Indication: Lower respiratory tract congestion
     Route: 065
     Dates: start: 20220426
  2. GUAIFENESIN [Suspect]
     Active Substance: GUAIFENESIN
     Indication: Lower respiratory tract congestion

REACTIONS (1)
  - Diarrhoea [Unknown]

NARRATIVE: CASE EVENT DATE: 20220426
